FAERS Safety Report 21749151 (Version 1)
Quarter: 2022Q4

REPORT INFORMATION
  Report Type: Spontaneous
  Country: GR (occurrence: GR)
  Receive Date: 20221219
  Receipt Date: 20221219
  Transmission Date: 20230113
  Serious: Yes (Hospitalization, Other)
  Sender: FDA-Public Use
  Company Number: GR-GILEAD-2022-0609669

PATIENT
  Age: 81 Year
  Sex: Male

DRUGS (14)
  1. VEKLURY [Suspect]
     Active Substance: REMDESIVIR
     Indication: COVID-19
     Dosage: 200 MG, DAY 1
     Route: 042
     Dates: start: 2021, end: 2021
  2. VEKLURY [Suspect]
     Active Substance: REMDESIVIR
     Dosage: 100 MG, QD SCHEDULED DAYS 2-5, DISCONTINUED AFTER 2 DAYS
     Route: 042
     Dates: start: 2021, end: 2021
  3. LISINOPRIL [Concomitant]
     Active Substance: LISINOPRIL
  4. TAMSULOSIN [Concomitant]
     Active Substance: TAMSULOSIN
  5. DULOXETINE [Concomitant]
     Active Substance: DULOXETINE
  6. SIMVASTATIN [Concomitant]
     Active Substance: SIMVASTATIN
  7. BECLOMETHASONE AERONATIV [Concomitant]
  8. FORMOTEROL [Concomitant]
     Active Substance: FORMOTEROL
  9. DEXAMETHASONE [Concomitant]
     Active Substance: DEXAMETHASONE
     Dosage: 6 MG, QD
     Route: 048
  10. AMPICILLIN SODIUM\SULBACTAM SODIUM [Concomitant]
     Active Substance: AMPICILLIN SODIUM\SULBACTAM SODIUM
     Indication: Superinfection
  11. AMPICILLIN SODIUM\SULBACTAM SODIUM [Concomitant]
     Active Substance: AMPICILLIN SODIUM\SULBACTAM SODIUM
     Indication: Lower respiratory tract infection
  12. ENOXAPARIN [Concomitant]
     Active Substance: ENOXAPARIN
     Indication: Atrial fibrillation
  13. METOPROLOL [Concomitant]
     Active Substance: METOPROLOL
  14. OXYGEN [Concomitant]
     Active Substance: OXYGEN

REACTIONS (1)
  - Hepatocellular injury [Recovered/Resolved]

NARRATIVE: CASE EVENT DATE: 20210101
